FAERS Safety Report 6301267-5 (Version None)
Quarter: 2009Q3

REPORT INFORMATION
  Report Type: 
  Country: None (occurrence: None)
  Receive Date: 20090807
  Receipt Date: 20090731
  Transmission Date: 20100115
  Serious: Yes (Life-Threatening, Hospitalization)
  Sender: FDA-Public Use
  Company Number: FR-BAYER-200927017GPV

PATIENT
  Age: 70 Year
  Sex: Male

DRUGS (11)
  1. CIFLOX [Suspect]
     Indication: DRUG USE FOR UNKNOWN INDICATION
     Route: 048
     Dates: start: 20081204, end: 20081207
  2. ARACYTINE [Suspect]
     Indication: ACUTE MYELOID LEUKAEMIA
     Route: 042
     Dates: start: 20081204, end: 20081210
  3. BELUSTINE [Suspect]
     Indication: ACUTE MYELOID LEUKAEMIA
     Route: 048
     Dates: start: 20081204, end: 20081204
  4. AMLOR [Suspect]
     Indication: HYPERTENSION
     Route: 048
     Dates: start: 20081204, end: 20081208
  5. ATARAX [Suspect]
     Indication: DRUG USE FOR UNKNOWN INDICATION
     Route: 048
     Dates: start: 20081205, end: 20081210
  6. TAHOR [Suspect]
     Indication: DYSLIPIDAEMIA
     Route: 048
     Dates: end: 20081210
  7. ZOPHREN [Suspect]
     Indication: DRUG USE FOR UNKNOWN INDICATION
     Dosage: 8MG/4ML
     Route: 042
     Dates: start: 20081204
  8. DEXAMETHASONE [Concomitant]
     Indication: ACUTE MYELOID LEUKAEMIA
     Route: 048
  9. LASIX [Concomitant]
     Indication: DRUG USE FOR UNKNOWN INDICATION
     Route: 048
  10. TAZOCILLINE [Concomitant]
     Indication: DRUG USE FOR UNKNOWN INDICATION
     Dosage: 4G/500MG
     Route: 042
  11. INIPOMP [Concomitant]
     Indication: DRUG USE FOR UNKNOWN INDICATION
     Route: 065

REACTIONS (2)
  - ANGINA PECTORIS [None]
  - MYOCARDIAL INFARCTION [None]
